FAERS Safety Report 8781273 (Version 3)
Quarter: 2013Q4

REPORT INFORMATION
  Report Type: Spontaneous
  Country: FR (occurrence: FR)
  Receive Date: 20120913
  Receipt Date: 20131126
  Transmission Date: 20140711
  Serious: Yes (Other)
  Sender: FDA-Public Use
  Company Number: FR-009507513-1209FRA004646

PATIENT
  Age: 47 Year
  Sex: Male

DRUGS (1)
  1. SINGULAIR [Suspect]
     Indication: PRODUCT USED FOR UNKNOWN INDICATION
     Dosage: 10 MG, QD
     Route: 048
     Dates: start: 20120809, end: 20120810

REACTIONS (8)
  - Pyrexia [Recovered/Resolved]
  - Headache [Recovered/Resolved]
  - Erythema [Recovered/Resolved]
  - Depression [Recovered/Resolved]
  - Dizziness [Recovered/Resolved]
  - Asthenia [Recovered/Resolved]
  - Bronchitis [Recovered/Resolved]
  - Nausea [Recovered/Resolved]
